FAERS Safety Report 23513074 (Version 1)
Quarter: 2024Q1

REPORT INFORMATION
  Report Type: Spontaneous
  Country: US (occurrence: None)
  Receive Date: 20240209
  Receipt Date: 20240209
  Transmission Date: 20240409
  Serious: Yes (Life-Threatening, Hospitalization)
  Sender: FDA-Public Use
  Company Number: None

PATIENT
  Age: 49 Year
  Sex: Male

DRUGS (3)
  1. TREMFYA [Suspect]
     Active Substance: GUSELKUMAB
     Indication: Psoriatic arthropathy
     Dosage: OTHER FREQUENCY : EVERY 8 WEEKS;?
     Route: 058
     Dates: start: 20230614, end: 20240111
  2. LISINOPRIL [Concomitant]
     Active Substance: LISINOPRIL
  3. Vitamin D 2 [Concomitant]

REACTIONS (3)
  - Traumatic heart injury [None]
  - Illness [None]
  - Immune system disorder [None]

NARRATIVE: CASE EVENT DATE: 20240111
